FAERS Safety Report 16292165 (Version 1)
Quarter: 2019Q2

REPORT INFORMATION
  Report Type: Spontaneous
  Country: FR (occurrence: FR)
  Receive Date: 20190509
  Receipt Date: 20190509
  Transmission Date: 20190711
  Serious: Yes (Other)
  Sender: FDA-Public Use
  Company Number: FR-PFIZER INC-2019195908

PATIENT
  Age: 41 Year
  Sex: Female
  Weight: 60 kg

DRUGS (4)
  1. VFEND [Concomitant]
     Active Substance: VORICONAZOLE
     Indication: BRONCHOPULMONARY ASPERGILLOSIS
     Dosage: 400 MG, 1X/DAY
     Route: 041
     Dates: start: 20160623, end: 20160715
  2. LEVOFLOXACIN. [Suspect]
     Active Substance: LEVOFLOXACIN
     Indication: STENOTROPHOMONAS SEPSIS
     Dosage: 500 MG, 1X/DAY
     Route: 041
     Dates: start: 20160627, end: 20160701
  3. VIALEBEX [Suspect]
     Active Substance: ALBUMIN HUMAN
     Dosage: 20 G, 1X/DAY
     Route: 042
     Dates: start: 20160628, end: 20160629
  4. YDRALBUM [Suspect]
     Active Substance: ALBUMIN HUMAN
     Route: 042
     Dates: start: 20160628, end: 20160628

REACTIONS (3)
  - Cholestasis [Recovered/Resolved]
  - Blood alkaline phosphatase increased [Recovered/Resolved]
  - Gamma-glutamyltransferase increased [Recovered/Resolved]

NARRATIVE: CASE EVENT DATE: 20160701
